FAERS Safety Report 6019025-8 (Version None)
Quarter: 2008Q4

REPORT INFORMATION
  Report Type: 
  Country: None (occurrence: None)
  Receive Date: 20081221
  Receipt Date: 20081221
  Transmission Date: 20090506
  Serious: Yes (Other)
  Sender: FDA-Public Use
  Company Number: None

PATIENT
  Age: 77 Year
  Sex: Male
  Weight: 108.8633 kg

DRUGS (1)
  1. CASODEX [Suspect]
     Indication: PROSTATE CANCER
     Dosage: 50 MG 1 PER DAY
     Dates: start: 20081117, end: 20081212

REACTIONS (3)
  - ABDOMINAL PAIN [None]
  - BACK DISORDER [None]
  - BACK PAIN [None]
